FAERS Safety Report 13739577 (Version 1)
Quarter: 2017Q3

REPORT INFORMATION
  Report Type: Spontaneous
  Country: BR (occurrence: BR)
  Receive Date: 20170710
  Receipt Date: 20170710
  Transmission Date: 20171127
  Serious: Yes (Other)
  Sender: FDA-Public Use
  Company Number: PHHY2013BR028276

PATIENT
  Age: 88 Year
  Sex: Female

DRUGS (2)
  1. HYDERGINE [Suspect]
     Active Substance: ERGOLOID MESYLATES
     Indication: CEREBRAL CIRCULATORY FAILURE
     Dosage: 4.5 MG, UNK
     Route: 048
  2. HYDERGINE [Suspect]
     Active Substance: ERGOLOID MESYLATES
     Dosage: 1 MG, UNK
     Dates: start: 20130317, end: 20130319

REACTIONS (4)
  - Logorrhoea [Unknown]
  - Confusional state [Unknown]
  - Memory impairment [Unknown]
  - Drug intolerance [Unknown]
